FAERS Safety Report 14053066 (Version 2)
Quarter: 2017Q4

REPORT INFORMATION
  Report Type: Spontaneous
  Country: US (occurrence: US)
  Receive Date: 20171006
  Receipt Date: 20171121
  Transmission Date: 20180321
  Serious: No
  Sender: FDA-Public Use
  Company Number: US-JNJFOC-20170906309

PATIENT
  Age: 45 Year
  Sex: Female
  Weight: 90.72 kg

DRUGS (5)
  1. INVEGA SUSTENNA [Suspect]
     Active Substance: PALIPERIDONE PALMITATE
     Indication: SCHIZOPHRENIA
     Route: 030
     Dates: start: 20170830
  2. OMEPRAZOLE. [Concomitant]
     Active Substance: OMEPRAZOLE
     Indication: GASTROOESOPHAGEAL REFLUX DISEASE
     Route: 048
  3. INVEGA SUSTENNA [Suspect]
     Active Substance: PALIPERIDONE PALMITATE
     Indication: SCHIZOPHRENIA
     Route: 030
     Dates: start: 20170930
  4. ONDANSETRON [Concomitant]
     Active Substance: ONDANSETRON
     Indication: IMPAIRED GASTRIC EMPTYING
     Route: 060
  5. COGENTIN [Concomitant]
     Active Substance: BENZTROPINE MESYLATE
     Indication: SCHIZOPHRENIA
     Route: 065

REACTIONS (3)
  - Injection site discomfort [Recovered/Resolved]
  - Pain in extremity [Recovered/Resolved]
  - Injection site nerve damage [Recovered/Resolved]

NARRATIVE: CASE EVENT DATE: 20170830
